FAERS Safety Report 6160495-2 (Version None)
Quarter: 2009Q2

REPORT INFORMATION
  Report Type: 
  Country: None (occurrence: None)
  Receive Date: 20090415
  Receipt Date: 20090415
  Transmission Date: 20091009
  Serious: Yes (Hospitalization)
  Sender: FDA-Public Use
  Company Number: None

PATIENT
  Age: 16 Year
  Sex: Male
  Weight: 47 kg

DRUGS (35)
  1. CISPLATIN [Suspect]
     Indication: NASOPHARYNGEAL CANCER
     Dosage: 146 MG CYC IV
     Route: 042
     Dates: start: 20080709, end: 20081021
  2. RADIATION THERAPY [Suspect]
     Indication: NASOPHARYNGEAL CANCER
     Dates: start: 20080916, end: 20081117
  3. CIPROFLOXACIN [Concomitant]
  4. CO-TRIMOXAZOLE [Concomitant]
  5. METOCLOPRAMIDE [Concomitant]
  6. DEXAMETHASONE [Concomitant]
  7. DEXTROSE 5% AND SODIUM CHLORIDE 0.45% IN PLASTIC CONTAINER [Concomitant]
  8. POTASSIUM CHLORIDE [Concomitant]
  9. CELECOXIB [Concomitant]
  10. MANNITOL [Concomitant]
  11. DIPHENHYDRAMIN [Concomitant]
  12. TRAMADOL HCL [Concomitant]
  13. MEFENAMIC ACID [Concomitant]
  14. . [Concomitant]
  15. . [Concomitant]
  16. . [Concomitant]
  17. . [Concomitant]
  18. . [Concomitant]
  19. . [Concomitant]
  20. . [Concomitant]
  21. . [Concomitant]
  22. . [Concomitant]
  23. . [Concomitant]
  24. . [Concomitant]
  25. . [Concomitant]
  26. . [Concomitant]
  27. . [Concomitant]
  28. . [Concomitant]
  29. . [Concomitant]
  30. . [Concomitant]
  31. . [Concomitant]
  32. . [Concomitant]
  33. . [Concomitant]
  34. . [Concomitant]
  35. . [Concomitant]

REACTIONS (14)
  - ATAXIA [None]
  - BLOOD MAGNESIUM DECREASED [None]
  - BLOOD POTASSIUM DECREASED [None]
  - BLOOD SODIUM DECREASED [None]
  - DECREASED APPETITE [None]
  - DEHYDRATION [None]
  - HEADACHE [None]
  - METASTASES TO CENTRAL NERVOUS SYSTEM [None]
  - NAUSEA [None]
  - NYSTAGMUS [None]
  - ODYNOPHAGIA [None]
  - SINUS DISORDER [None]
  - VIRAL UPPER RESPIRATORY TRACT INFECTION [None]
  - VOMITING [None]
